FAERS Safety Report 23696247 (Version 2)
Quarter: 2024Q2

REPORT INFORMATION
  Report Type: Spontaneous
  Country: IT (occurrence: IT)
  Receive Date: 20240402
  Receipt Date: 20240416
  Transmission Date: 20240716
  Serious: Yes (Hospitalization)
  Sender: FDA-Public Use
  Company Number: None

PATIENT
  Age: 84 Year
  Sex: Female

DRUGS (8)
  1. HYDROCHLOROTHIAZIDE\TELMISARTAN [Suspect]
     Active Substance: HYDROCHLOROTHIAZIDE\TELMISARTAN
     Indication: Hypertension
     Dosage: DOSAGE: 1 TABLET PER DAY THAT INCLUDES TELMISARTAN 80MG AND HYDROCHLORTHIAZIDE 25MG. ?THE THERAPY ST
     Route: 048
  2. EDOXABAN TOSYLATE [Suspect]
     Active Substance: EDOXABAN TOSYLATE
     Indication: Hypertension
     Dosage: THERAPY START DATE IS AN EX OFFICIO ATTRIBUTION.
     Route: 048
  3. OSSICODONE CLORIDRATO + NALOXONE CLORIDRATO [Concomitant]
     Indication: Product used for unknown indication
  4. DEPONIT [Concomitant]
     Active Substance: NITROGLYCERIN
     Indication: Product used for unknown indication
  5. GABAPENTIN [Concomitant]
     Active Substance: GABAPENTIN
     Indication: Product used for unknown indication
  6. AMIODARONE [Concomitant]
     Active Substance: AMIODARONE
     Indication: Cardiac failure
     Dosage: DOSAGE: 1 TABLET OF 200 MG, 5 DAYS PER WEEK. ?THE THERAPY START DATE IS AN EX OFFICIO ATTRIBUTION.
     Route: 048
  7. ROSUVASTATIN [Concomitant]
     Active Substance: ROSUVASTATIN
     Indication: Product used for unknown indication
  8. FUROSEMIDE [Concomitant]
     Active Substance: FUROSEMIDE
     Indication: Product used for unknown indication
     Dosage: THE THERAPY START DATE IS AN EX OFFICIO ATTRIBUTION.
     Route: 048

REACTIONS (2)
  - Anaemia [Unknown]
  - Asthenia [Recovering/Resolving]

NARRATIVE: CASE EVENT DATE: 20231208
